FAERS Safety Report 22746471 (Version 3)
Quarter: 2025Q3

REPORT INFORMATION
  Report Type: Spontaneous
  Country: US (occurrence: US)
  Receive Date: 20230725
  Receipt Date: 20250928
  Transmission Date: 20251020
  Serious: No
  Sender: SANOFI AVENTIS
  Company Number: US-SA-SAC20230724001220

PATIENT
  Age: 38 Year
  Sex: Male

DRUGS (2)
  1. DUPIXENT [Suspect]
     Active Substance: DUPILUMAB
     Indication: Nasal polyps
     Dosage: 300 MG, QOW
     Route: 058
  2. DUPIXENT [Suspect]
     Active Substance: DUPILUMAB
     Indication: Chronic sinusitis

REACTIONS (7)
  - Nasal congestion [Not Recovered/Not Resolved]
  - Rebound nasal congestion [Not Recovered/Not Resolved]
  - Nasal oedema [Not Recovered/Not Resolved]
  - Injection site scar [Unknown]
  - Injection site discomfort [Unknown]
  - Injection site reaction [Unknown]
  - Injection site pain [Unknown]
